FAERS Safety Report 8598018-0 (Version None)
Quarter: 2012Q3

REPORT INFORMATION
  Report Type: 
  Country: None (occurrence: None)
  Receive Date: 20120816
  Receipt Date: 20120813
  Transmission Date: 20120928
  Serious: Yes (Death)
  Sender: FDA-Public Use
  Company Number: US-BRISTOL-MYERS SQUIBB COMPANY-16853830

PATIENT
  Sex: Male

DRUGS (1)
  1. CEENU [Suspect]
     Indication: BRAIN NEOPLASM MALIGNANT

REACTIONS (1)
  - DEATH [None]
